FAERS Safety Report 4614603-2 (Version None)
Quarter: 2005Q2

REPORT INFORMATION
  Report Type: 
  Country: None (occurrence: None)
  Receive Date: 20050307
  Receipt Date: 20050105
  Transmission Date: 20051028
  Serious: No
  Sender: FDA-Public Use
  Company Number: USA041082668

PATIENT
  Age: 78 Year
  Sex: Female

DRUGS (5)
  1. ALIMTA [Suspect]
     Indication: BREAST CANCER
     Dosage: 750 MG OTHER
     Dates: start: 20030901
  2. VITAMIN B-12 [Concomitant]
  3. FOLIC ACID [Concomitant]
  4. DECADRON [Concomitant]
  5. DECADRON [Concomitant]

REACTIONS (1)
  - OEDEMA [None]
